FAERS Safety Report 25168135 (Version 1)
Quarter: 2025Q2

REPORT INFORMATION
  Report Type: Spontaneous
  Country: US (occurrence: US)
  Receive Date: 20250407
  Receipt Date: 20250407
  Transmission Date: 20250716
  Serious: No
  Sender: CORCEPT
  Company Number: US-CORCEPT THERAPEUTICS INC.-US-2024CRT002486

PATIENT

DRUGS (2)
  1. KORLYM [Suspect]
     Active Substance: MIFEPRISTONE
     Indication: Cushing^s syndrome
     Dosage: 300 MG, QD
     Route: 048
     Dates: start: 202408, end: 2024
  2. INSULIN NOS [Concomitant]
     Active Substance: INSULIN NOS
     Indication: Product used for unknown indication
     Route: 065

REACTIONS (8)
  - Tachycardia [Unknown]
  - Tremor [Not Recovered/Not Resolved]
  - Apathy [Not Recovered/Not Resolved]
  - Gait disturbance [Unknown]
  - Nausea [Unknown]
  - Dizziness [Unknown]
  - Fatigue [Not Recovered/Not Resolved]
  - Dyspnoea [Not Recovered/Not Resolved]

NARRATIVE: CASE EVENT DATE: 20240101
